FAERS Safety Report 15904570 (Version 1)
Quarter: 2019Q1

REPORT INFORMATION
  Report Type: Spontaneous
  Country: RU (occurrence: RU)
  Receive Date: 20190204
  Receipt Date: 20190204
  Transmission Date: 20190417
  Serious: Yes (Death, Hospitalization, Other)
  Sender: FDA-Public Use
  Company Number: RU-009507513-1901RUS012107

PATIENT
  Age: 27 Year
  Sex: Female

DRUGS (3)
  1. CYCLOPHOSPHAMIDE. [Suspect]
     Active Substance: CYCLOPHOSPHAMIDE
     Indication: ORAL CANDIDIASIS
     Dosage: UNK
     Route: 042
  2. MYLERAN [Suspect]
     Active Substance: BUSULFAN
     Indication: ORAL CANDIDIASIS
     Dosage: UNK
  3. NOXAFIL [Suspect]
     Active Substance: POSACONAZOLE
     Indication: ORAL CANDIDIASIS
     Dosage: UNK

REACTIONS (5)
  - Disseminated intravascular coagulation [Fatal]
  - Adenovirus infection [Fatal]
  - Hepatic necrosis [Fatal]
  - Haemorrhage [Fatal]
  - Hepatic failure [Fatal]
